FAERS Safety Report 12561858 (Version 3)
Quarter: 2016Q4

REPORT INFORMATION
  Report Type: Spontaneous
  Country: JP (occurrence: JP)
  Receive Date: 20160715
  Receipt Date: 20161101
  Transmission Date: 20170207
  Serious: Yes (Hospitalization, Other)
  Sender: FDA-Public Use
  Company Number: JP-BRISTOL-MYERS SQUIBB COMPANY-BMS-2016-057247

PATIENT
  Age: 75 Year
  Sex: Male
  Weight: 54 kg

DRUGS (1)
  1. KENACORT-A [Suspect]
     Active Substance: TRIAMCINOLONE
     Indication: PRODUCT USED FOR UNKNOWN INDICATION
     Dosage: 20 MG, QD
     Route: 050
     Dates: start: 20150917, end: 20150917

REACTIONS (6)
  - Surgery [Unknown]
  - Scedosporium infection [Recovering/Resolving]
  - Periorbital infection [Recovering/Resolving]
  - Abscess drainage [Unknown]
  - Product use issue [Unknown]
  - Scleritis [Recovering/Resolving]

NARRATIVE: CASE EVENT DATE: 20151114
